FAERS Safety Report 9739329 (Version 1)
Quarter: 2013Q4

REPORT INFORMATION
  Report Type: Spontaneous
  Country: US (occurrence: US)
  Receive Date: 20131209
  Receipt Date: 20131209
  Transmission Date: 20140711
  Serious: Yes (Other)
  Sender: FDA-Public Use
  Company Number: US-BAYER-2013-148493

PATIENT
  Age: 18 Year
  Sex: Female

DRUGS (1)
  1. CIPRO [Suspect]
     Dosage: 500 MG, BID
     Route: 048
     Dates: start: 2010

REACTIONS (3)
  - Nerve injury [None]
  - Tendon rupture [None]
  - Limb injury [None]
